FAERS Safety Report 5211625-8 (Version None)
Quarter: 2007Q1

REPORT INFORMATION
  Report Type: 
  Country: None (occurrence: None)
  Receive Date: 20070118
  Receipt Date: 20070112
  Transmission Date: 20070707
  Serious: Yes (Death, Hospitalization)
  Sender: FDA-Public Use
  Company Number: PHHO2007VE01121

PATIENT
  Age: 71 Year
  Sex: Female

DRUGS (3)
  1. DIOVAN HCT [Suspect]
     Dosage: 160MG/12.5MG DAILY
     Route: 048
     Dates: start: 20060916, end: 20060928
  2. ENALAPRIL MALEATE [Concomitant]
     Dosage: UNK, UNK
     Dates: end: 20060928
  3. COZAAR [Concomitant]

REACTIONS (3)
  - FEELING ABNORMAL [None]
  - INFARCTION [None]
  - ISCHAEMIC STROKE [None]
